FAERS Safety Report 25524994 (Version 1)
Quarter: 2025Q3

REPORT INFORMATION
  Report Type: Spontaneous
  Country: US (occurrence: None)
  Receive Date: 20250705
  Receipt Date: 20250705
  Transmission Date: 20251020
  Serious: Yes (Disabling)
  Sender: FDA-CTU
  Company Number: None

PATIENT
  Age: 69 Year
  Sex: Female
  Weight: 60.75 kg

DRUGS (5)
  1. PROLIA [Suspect]
     Active Substance: DENOSUMAB
  2. Levothyroxine 112 [Concomitant]
  3. VITAMINS [Concomitant]
     Active Substance: VITAMINS
  4. Ca with D3 [Concomitant]
  5. glucosamine/ chondrotin [Concomitant]

REACTIONS (2)
  - Bone pain [None]
  - Arthralgia [None]

NARRATIVE: CASE EVENT DATE: 20250514
